FAERS Safety Report 13501614 (Version 1)
Quarter: 2017Q2

REPORT INFORMATION
  Report Type: Spontaneous
  Country: US (occurrence: US)
  Receive Date: 20170501
  Receipt Date: 20170501
  Transmission Date: 20170830
  Serious: Yes (Death)
  Sender: FDA-Public Use
  Company Number: PHHY2017US060272

PATIENT
  Age: 38 Day
  Sex: Female

DRUGS (5)
  1. GENTAMICIN. [Concomitant]
     Active Substance: GENTAMICIN
     Indication: PRODUCT USED FOR UNKNOWN INDICATION
     Route: 065
  2. VANCOMYCIN [Suspect]
     Active Substance: VANCOMYCIN
     Dosage: 20 MG/KG, Q12H
     Route: 065
     Dates: start: 20120624, end: 20120628
  3. VANCOMYCIN [Suspect]
     Active Substance: VANCOMYCIN
     Indication: PRODUCT USED FOR UNKNOWN INDICATION
     Dosage: 20 MG/KG, Q18H
     Route: 065
     Dates: start: 20120620, end: 20120622
  4. VANCOMYCIN [Suspect]
     Active Substance: VANCOMYCIN
     Dosage: 20 MG/KG, Q12H
     Route: 065
     Dates: start: 20120623, end: 20120624
  5. DOPAMINE [Concomitant]
     Active Substance: DOPAMINE\DOPAMINE HYDROCHLORIDE
     Indication: PRODUCT USED FOR UNKNOWN INDICATION
     Route: 065

REACTIONS (1)
  - Acute kidney injury [Fatal]
